FAERS Safety Report 7111452-0 (Version None)
Quarter: 2010Q4

REPORT INFORMATION
  Report Type: 
  Country: None (occurrence: None)
  Receive Date: 20101118
  Receipt Date: 20100409
  Transmission Date: 20110411
  Serious: No
  Sender: FDA-Public Use
  Company Number: US-PFIZER INC-2010046174

PATIENT
  Sex: Female
  Weight: 57.143 kg

DRUGS (2)
  1. ZYVOX [Suspect]
     Indication: SKIN ULCER
     Dosage: 600 MG, 1X/DAY
     Dates: start: 20100112, end: 20100101
  2. ZYVOX [Suspect]
     Indication: STAPHYLOCOCCAL INFECTION

REACTIONS (3)
  - ABDOMINAL PAIN UPPER [None]
  - DIARRHOEA [None]
  - DYSPEPSIA [None]
